FAERS Safety Report 9085753 (Version 1)
Quarter: 2013Q1

REPORT INFORMATION
  Report Type: Spontaneous
  Country: ES (occurrence: ES)
  Receive Date: 20130131
  Receipt Date: 20130131
  Transmission Date: 20140127
  Serious: Yes (Life-Threatening, Hospitalization)
  Sender: FDA-Public Use
  Company Number: ES-ROXANE LABORATORIES, INC.-2013-RO-00157RO

PATIENT
  Age: 14 Year
  Sex: Male

DRUGS (6)
  1. MONTELUKAST SODIUM [Suspect]
     Indication: ASTHMA
  2. MONTELUKAST SODIUM [Suspect]
  3. SALBUTAMOL [Suspect]
     Indication: ASTHMA
  4. SALBUTAMOL [Suspect]
     Indication: ASTHMA
  5. CORTICOSTEROIDS [Suspect]
     Indication: ASTHMA
     Route: 055
  6. CORTICOSTEROIDS [Suspect]

REACTIONS (4)
  - Suicidal ideation [Recovered/Resolved]
  - Aggression [Recovered/Resolved]
  - Abnormal behaviour [Recovered/Resolved]
  - Mania [Recovered/Resolved]
